FAERS Safety Report 21487612 (Version 1)
Quarter: 2022Q4

REPORT INFORMATION
  Report Type: Spontaneous
  Country: US (occurrence: US)
  Receive Date: 20221020
  Receipt Date: 20221020
  Transmission Date: 20230112
  Serious: Yes (Congenital Anomaly)
  Sender: FDA-Public Use
  Company Number: US-NOVARTISPH-NVSC2022US231252

PATIENT

DRUGS (2)
  1. CEFTRIAXONE [Suspect]
     Active Substance: CEFTRIAXONE
     Indication: Foetal exposure during pregnancy
     Dosage: MATERNAL EXPOSURE DURING PREGNANCY:1 G, QD
     Route: 064
  2. CEFTRIAXONE [Suspect]
     Active Substance: CEFTRIAXONE
     Dosage: MATERNAL EXPOSURE DURING PREGNANCY:250 MG, QD
     Route: 064

REACTIONS (2)
  - Congenital syphilis [Not Recovered/Not Resolved]
  - Foetal exposure during pregnancy [Unknown]
